FAERS Safety Report 17768520 (Version 2)
Quarter: 2020Q2

REPORT INFORMATION
  Report Type: Report from Study
  Country: PL (occurrence: PL)
  Receive Date: 20200512
  Receipt Date: 20200610
  Transmission Date: 20200714
  Serious: Yes (Other)
  Sender: FDA-Public Use
  Company Number: PL-AMGEN-POLNI2019198912

PATIENT
  Age: 66 Year
  Sex: Male
  Weight: 74 kg

DRUGS (8)
  1. PANITUMUMAB [Suspect]
     Active Substance: PANITUMUMAB
     Indication: COLORECTAL CANCER METASTATIC
     Dosage: 450 MILLIGRAM
     Route: 042
     Dates: start: 20180919
  2. FUSACID [Concomitant]
     Dosage: 20 UNK
     Route: 061
     Dates: start: 20190108, end: 20190718
  3. ATOSSA [ONDANSETRON] [Concomitant]
     Indication: ACNE
     Dosage: 8 MILLIGRAM
     Route: 048
     Dates: start: 20190110
  4. FUCIBET [Concomitant]
     Dosage: 15 UNK
     Route: 061
     Dates: start: 20190108, end: 20190718
  5. OXALIPLATINA [Concomitant]
     Active Substance: OXALIPLATIN
     Indication: COLORECTAL CANCER METASTATIC
     Dosage: UNK
     Dates: start: 20190718
  6. TETRALYSAL [TETRACYCLINE] [Concomitant]
     Active Substance: TETRACYCLINE
     Dosage: 300 MILLIGRAM
     Route: 048
     Dates: start: 20190510
  7. LEVOFOLIC [Concomitant]
     Active Substance: LEUCOVORIN
     Indication: COLORECTAL CANCER METASTATIC
     Dosage: UNK
     Dates: start: 20190718
  8. 5-FLUOROURACIL [FLUOROURACIL] [Concomitant]
     Active Substance: FLUOROURACIL
     Indication: COLORECTAL CANCER METASTATIC
     Dosage: UNK
     Dates: start: 20190718

REACTIONS (3)
  - Neuropathy peripheral [Not Recovered/Not Resolved]
  - Acne [Not Recovered/Not Resolved]
  - Bone marrow toxicity [Not Recovered/Not Resolved]

NARRATIVE: CASE EVENT DATE: 20190718
